FAERS Safety Report 14057697 (Version 3)
Quarter: 2017Q4

REPORT INFORMATION
  Report Type: Spontaneous
  Country: US (occurrence: US)
  Receive Date: 20171006
  Receipt Date: 20171115
  Transmission Date: 20180321
  Serious: No
  Sender: FDA-Public Use
  Company Number: US-GLAXOSMITHKLINE-US2017GSK152951

PATIENT
  Age: 79 Year
  Sex: Female

DRUGS (3)
  1. FLOVENT DISKUS [Suspect]
     Active Substance: FLUTICASONE PROPIONATE
     Indication: BRONCHITIS
     Dosage: 1 PUFF(S), BID
     Dates: start: 20170928
  2. VENTOLIN [Concomitant]
     Active Substance: ALBUTEROL SULFATE
  3. FLOVENT DISKUS [Suspect]
     Active Substance: FLUTICASONE PROPIONATE
     Indication: PNEUMONIA

REACTIONS (6)
  - Underdose [Unknown]
  - Product quality issue [Unknown]
  - Cough [Not Recovered/Not Resolved]
  - Drug dose omission [Unknown]
  - Product use in unapproved indication [Unknown]
  - Drug ineffective for unapproved indication [Unknown]

NARRATIVE: CASE EVENT DATE: 20170928
